FAERS Safety Report 21591817 (Version 1)
Quarter: 2022Q4

REPORT INFORMATION
  Report Type: Report from Study
  Country: CA (occurrence: CA)
  Receive Date: 20221114
  Receipt Date: 20221114
  Transmission Date: 20230112
  Serious: Yes (Death)
  Sender: FDA-Public Use
  Company Number: CA-ABBVIE-4198668

PATIENT
  Age: 80 Year
  Sex: Male

DRUGS (5)
  1. VENCLEXTA [Suspect]
     Active Substance: VENETOCLAX
     Indication: Acute myeloid leukaemia
     Route: 048
     Dates: start: 20220314, end: 20220801
  2. PMS-Diclofenac-Misoprostol [Concomitant]
     Indication: Pain
     Dosage: 75MG/200MCG?1 TABLET TWICE DAILY WHEN REQUIRED
  3. Mar-Allopurinol [Concomitant]
     Indication: Product used for unknown indication
     Route: 048
  4. SYNTHROID [Concomitant]
     Active Substance: LEVOTHYROXINE SODIUM
     Indication: Product used for unknown indication
     Route: 048
  5. ACETAMINOPHEN\CAFFEINE\CODEINE PHOSPHATE [Concomitant]
     Active Substance: ACETAMINOPHEN\CAFFEINE\CODEINE PHOSPHATE
     Indication: Pain
     Dosage: 1 TABLET FOUR TIMES DAILY WHEN REQUIRED
     Route: 048

REACTIONS (1)
  - Death [Fatal]

NARRATIVE: CASE EVENT DATE: 20220801
